FAERS Safety Report 24286594 (Version 1)
Quarter: 2024Q3

REPORT INFORMATION
  Report Type: Other
  Country: DE (occurrence: DE)
  Receive Date: 20240905
  Receipt Date: 20240905
  Transmission Date: 20241017
  Serious: Yes (Life-Threatening, Hospitalization, Other)
  Sender: Spectra Medical Devices
  Company Number: DE-Spectra Medical Devices, LLC-2161230

PATIENT
  Age: 3 Month
  Sex: Male

DRUGS (4)
  1. LIDOCAINE HYDROCHLORIDE [Suspect]
     Active Substance: LIDOCAINE HYDROCHLORIDE
     Indication: Nerve block
     Route: 042
  2. ESKETAMINE [Concomitant]
     Active Substance: ESKETAMINE
     Route: 065
  3. VECURONIUM BROMIDE [Concomitant]
     Active Substance: VECURONIUM BROMIDE
     Route: 065
  4. REMIFENTANIL HYDROCHLORIDE [Concomitant]
     Active Substance: REMIFENTANIL HYDROCHLORIDE
     Route: 065

REACTIONS (5)
  - Seizure [Recovered/Resolved]
  - Incorrect route of product administration [Unknown]
  - Accidental overdose [Unknown]
  - Toxicity to various agents [Recovered/Resolved]
  - Tachycardia [Recovered/Resolved]
